FAERS Safety Report 16643155 (Version 2)
Quarter: 2019Q3

REPORT INFORMATION
  Report Type: Spontaneous
  Country: US (occurrence: US)
  Receive Date: 20190729
  Receipt Date: 20190917
  Transmission Date: 20191004
  Serious: No
  Sender: FDA-Public Use
  Company Number: US-PFIZER INC-2019321958

PATIENT
  Age: 41 Year
  Sex: Female

DRUGS (1)
  1. GABAPENTIN. [Suspect]
     Active Substance: GABAPENTIN
     Indication: FIBROMYALGIA
     Dosage: 100 MG, DAILY
     Route: 048
     Dates: start: 20170602, end: 20170803

REACTIONS (6)
  - Drug hypersensitivity [Unknown]
  - Fatigue [Recovered/Resolved]
  - Off label use [Unknown]
  - Somnolence [Unknown]
  - Drug intolerance [Unknown]
  - Product use in unapproved indication [Unknown]

NARRATIVE: CASE EVENT DATE: 20170603
